FAERS Safety Report 20778797 (Version 1)
Quarter: 2022Q2

REPORT INFORMATION
  Report Type: Spontaneous
  Country: US (occurrence: None)
  Receive Date: 20220503
  Receipt Date: 20220503
  Transmission Date: 20220721
  Serious: Yes (Other)
  Sender: FDA-Public Use
  Company Number: None

PATIENT
  Sex: Female
  Weight: 99.79 kg

DRUGS (2)
  1. PAXLOVID [Suspect]
     Active Substance: NIRMATRELVIR\RITONAVIR
  2. IBRUTINIB [Suspect]
     Active Substance: IBRUTINIB

REACTIONS (6)
  - Pyrexia [None]
  - Malaise [None]
  - Withdrawal syndrome [None]
  - Cough [None]
  - Respiratory tract congestion [None]
  - Laboratory test abnormal [None]
